FAERS Safety Report 8560771-X (Version None)
Quarter: 2012Q3

REPORT INFORMATION
  Report Type: 
  Country: None (occurrence: None)
  Receive Date: 20120727
  Receipt Date: 20120727
  Transmission Date: 20120928
  Serious: Yes (Hospitalization)
  Sender: FDA-Public Use
  Company Number: None

PATIENT
  Age: 54 Year
  Sex: Female
  Weight: 113.5 kg

DRUGS (7)
  1. PAXIL [Concomitant]
  2. IBUPROFEN [Concomitant]
  3. M.V.I. [Concomitant]
  4. FERROUS SULFATE TAB [Concomitant]
  5. RIBAVIRIN [Concomitant]
  6. PEG-INTRON [Suspect]
     Indication: HEPATITIS C
     Dosage: 150MCG Q FRIDAY SQ  RECENT
     Route: 058
  7. TYLENOL [Concomitant]

REACTIONS (5)
  - PYREXIA [None]
  - CHILLS [None]
  - HYPERHIDROSIS [None]
  - URINARY TRACT INFECTION [None]
  - NAUSEA [None]
